FAERS Safety Report 8511099-5 (Version None)
Quarter: 2012Q3

REPORT INFORMATION
  Report Type: 
  Country: None (occurrence: None)
  Receive Date: 20120716
  Receipt Date: 20120709
  Transmission Date: 20120928
  Serious: Yes (Other)
  Sender: FDA-Public Use
  Company Number: US-SANOFI-AVENTIS-2012SA048967

PATIENT
  Age: 37 Year
  Sex: Female

DRUGS (1)
  1. LANTUS [Suspect]
     Route: 058
     Dates: start: 20030101

REACTIONS (3)
  - BLOOD GLUCOSE DECREASED [None]
  - BREAST CANCER [None]
  - BLOOD GLUCOSE FLUCTUATION [None]
